FAERS Safety Report 5430661-X (Version None)
Quarter: 2007Q3

REPORT INFORMATION
  Report Type: 
  Country: None (occurrence: None)
  Receive Date: 20070830
  Receipt Date: 20060828
  Transmission Date: 20080115
  Serious: No
  Sender: FDA-Public Use
  Company Number: US-KINGPHARMUSA00001-K200601100

PATIENT

DRUGS (2)
  1. FLORINEF [Suspect]
     Indication: AUTONOMIC NERVOUS SYSTEM IMBALANCE
     Dosage: .1 MG, QOD
     Route: 048
     Dates: start: 20050101
  2. PAXIL [Concomitant]
     Dosage: 10 MG, QD
     Route: 048

REACTIONS (5)
  - DEPRESSION [None]
  - JOINT SWELLING [None]
  - MUSCULAR WEAKNESS [None]
  - SKIN DISCOLOURATION [None]
  - VISUAL ACUITY REDUCED [None]
